FAERS Safety Report 6673772-3 (Version None)
Quarter: 2010Q2

REPORT INFORMATION
  Report Type: 
  Country: None (occurrence: None)
  Receive Date: 20100407
  Receipt Date: 20100326
  Transmission Date: 20101027
  Serious: Yes (Hospitalization)
  Sender: FDA-Public Use
  Company Number: UTC-000969

PATIENT
  Age: 10 Year
  Sex: Male
  Weight: 30 kg

DRUGS (3)
  1. REMODULIN [Suspect]
     Indication: PULMONARY ARTERIAL HYPERTENSION
     Dosage: 95.04 UG/KG (0.066 UG/KG, 1 IN 1 MIN), INTRAVENOUS
     Route: 042
  2. REVATIO [Concomitant]
  3. PLAVIX [Concomitant]

REACTIONS (2)
  - CATHETER SITE INFECTION [None]
  - PNEUMONIA [None]
